FAERS Safety Report 10803227 (Version 4)
Quarter: 2015Q2

REPORT INFORMATION
  Report Type: Report from Study
  Country: IT (occurrence: IT)
  Receive Date: 20150217
  Receipt Date: 20150401
  Transmission Date: 20150821
  Serious: Yes (Death, Hospitalization)
  Sender: FDA-Public Use
  Company Number: IT-GILEAD-2015-0136939

PATIENT
  Age: 70 Year
  Sex: Male
  Weight: 58.3 kg

DRUGS (28)
  1. TACHIPIRINA [Concomitant]
     Active Substance: ACETAMINOPHEN
     Indication: PREMEDICATION
     Dosage: UNK
     Route: 048
     Dates: start: 20140624
  2. RIOPAN                             /00141701/ [Concomitant]
     Indication: OESOPHAGITIS
     Dosage: UNK
     Route: 048
     Dates: start: 20140903
  3. LEVOTUSS [Concomitant]
     Active Substance: LEVODROPROPIZINE
     Indication: BRONCHITIS
     Dosage: UNK
     Route: 048
     Dates: start: 20150107
  4. AVODART [Concomitant]
     Active Substance: DUTASTERIDE
     Indication: PROPHYLAXIS
  5. OLIMEL [Concomitant]
     Active Substance: AMINO ACIDS\DEXTROSE\SOYBEAN OIL
     Indication: WEIGHT DECREASED
     Dosage: UNK
     Route: 042
     Dates: start: 20141231, end: 20150120
  6. IDELALISIB [Suspect]
     Active Substance: IDELALISIB
     Indication: NON-HODGKIN^S LYMPHOMA
     Dosage: 100 MG, BID
     Route: 048
     Dates: start: 20141203, end: 20141213
  7. BENDAMUSTINE [Suspect]
     Active Substance: BENDAMUSTINE
     Dosage: 60 MG/M2, UNK
     Route: 042
     Dates: start: 20141203
  8. CIPROXIN                           /00697201/ [Concomitant]
     Indication: BRONCHITIS
     Dosage: UNK
     Route: 048
     Dates: start: 20150105, end: 20150122
  9. DIDROGYL [Concomitant]
     Indication: WEIGHT DECREASED
     Dosage: UNK
     Route: 048
     Dates: start: 20150119
  10. ALLOPURINOL. [Concomitant]
     Active Substance: ALLOPURINOL
     Indication: HYPERURICAEMIA
  11. ARANESP [Concomitant]
     Active Substance: DARBEPOETIN ALFA
     Indication: ANAEMIA
     Dosage: UNK
     Dates: start: 20141103
  12. KONAKION [Concomitant]
     Active Substance: PHYTONADIONE
     Indication: WEIGHT DECREASED
     Dosage: UNK
     Route: 048
     Dates: start: 20141229
  13. POLASE [Concomitant]
     Active Substance: MAGNESIUM ASPARTATE\POTASSIUM ASPARTATE
     Indication: MINERAL SUPPLEMENTATION
     Dosage: UNK
     Route: 048
     Dates: start: 20150122
  14. IDELALISIB [Suspect]
     Active Substance: IDELALISIB
     Dosage: 150 MG, BID
     Route: 048
     Dates: start: 20140624, end: 20141011
  15. SOLU-CORTEF [Concomitant]
     Active Substance: HYDROCORTISONE SODIUM SUCCINATE
     Indication: PREMEDICATION
     Dosage: UNK
     Route: 042
     Dates: start: 20140624
  16. TRIMETON [Concomitant]
     Active Substance: CHLORPHENIRAMINE MALEATE
     Indication: PREMEDICATION
     Dosage: UNK
     Route: 042
     Dates: start: 20140624
  17. ARANESP [Concomitant]
     Active Substance: DARBEPOETIN ALFA
     Indication: THROMBOCYTOPENIA
  18. MAG 2                              /00454301/ [Concomitant]
     Indication: WEIGHT DECREASED
     Dosage: UNK
     Route: 048
     Dates: start: 20150120
  19. KCL [Concomitant]
     Active Substance: POTASSIUM CHLORIDE
     Indication: WEIGHT DECREASED
     Dosage: UNK
     Route: 048
     Dates: start: 20141203, end: 20150120
  20. LEDERFOLIN [Concomitant]
     Active Substance: LEUCOVORIN CALCIUM
     Indication: WEIGHT DECREASED
     Dosage: UNK
     Route: 048
     Dates: start: 20150123
  21. RITUXIMAB [Suspect]
     Active Substance: RITUXIMAB
     Indication: NON-HODGKIN^S LYMPHOMA
     Dosage: 375 MG/M2, CYCLICAL
     Route: 042
     Dates: start: 20140624
  22. GRANISETRON [Concomitant]
     Active Substance: GRANISETRON
     Indication: PREMEDICATION
     Dosage: UNK
     Route: 042
     Dates: start: 20140624
  23. ALLOPURINOL. [Concomitant]
     Active Substance: ALLOPURINOL
     Indication: PROPHYLAXIS
     Dosage: UNK
     Route: 048
     Dates: start: 20140604
  24. PANTOPRAZOLO [Concomitant]
     Indication: OESOPHAGITIS
     Dosage: UNK
     Route: 048
     Dates: start: 20141230
  25. BENDAMUSTINE [Suspect]
     Active Substance: BENDAMUSTINE
     Indication: NON-HODGKIN^S LYMPHOMA
     Dosage: 30 MG/M2, CYCLICAL
     Route: 042
     Dates: start: 20140624, end: 20140927
  26. MYCOSTATIN [Concomitant]
     Active Substance: NYSTATIN
     Indication: OESOPHAGITIS
     Dosage: UNK
     Route: 048
     Dates: start: 20141231
  27. BUDESONIDE. [Concomitant]
     Active Substance: BUDESONIDE
     Indication: COLITIS
     Dosage: UNK
     Route: 048
     Dates: start: 20150114
  28. AVODART [Concomitant]
     Active Substance: DUTASTERIDE
     Indication: PROSTATIC SPECIFIC ANTIGEN
     Dosage: UNK
     Route: 048
     Dates: start: 20150116

REACTIONS (1)
  - Hypotension [Fatal]

NARRATIVE: CASE EVENT DATE: 20150208
